FAERS Safety Report 6599395-2 (Version None)
Quarter: 2010Q1

REPORT INFORMATION
  Report Type: 
  Country: None (occurrence: None)
  Receive Date: 20100224
  Receipt Date: 20100213
  Transmission Date: 20100710
  Serious: Yes (Death, Hospitalization, Other)
  Sender: FDA-Public Use
  Company Number: US-BAXTER-2010BH003141

PATIENT
  Sex: Male

DRUGS (4)
  1. HEPARIN SODIUM INJECTION [Suspect]
     Indication: HAEMODIALYSIS
     Route: 065
     Dates: start: 20080201
  2. HEPARIN SODIUM INJECTION [Suspect]
     Route: 010
     Dates: start: 20080219, end: 20080219
  3. HEPARIN SODIUM INJECTION [Suspect]
     Route: 010
     Dates: start: 20080223, end: 20080223
  4. HEPARIN SODIUM INJECTION [Suspect]
     Route: 010
     Dates: start: 20080228, end: 20080228

REACTIONS (13)
  - CARDIAC ARREST [None]
  - CATHETER SITE HAEMORRHAGE [None]
  - DEATH [None]
  - FALL [None]
  - GENERAL PHYSICAL HEALTH DETERIORATION [None]
  - HYPOTENSION [None]
  - MENTAL STATUS CHANGES [None]
  - PLATELET COUNT DECREASED [None]
  - PYREXIA [None]
  - RENAL FAILURE CHRONIC [None]
  - SEPSIS [None]
  - THROMBOCYTOPENIA [None]
  - UNRESPONSIVE TO STIMULI [None]
